FAERS Safety Report 8866354 (Version 5)
Quarter: 2014Q4

REPORT INFORMATION
  Report Type: Report from Study
  Country: CA (occurrence: CA)
  Receive Date: 20121025
  Receipt Date: 20141017
  Transmission Date: 20150529
  Serious: Yes (Other)
  Sender: FDA-Public Use
  Company Number: CA-ROCHE-1143495

PATIENT
  Age: 53 Year
  Sex: Female
  Weight: 76 kg

DRUGS (10)
  1. RAMIPRIL. [Concomitant]
     Active Substance: RAMIPRIL
  2. LEUCOVORIN [Concomitant]
     Active Substance: LEUCOVORIN
     Route: 048
  3. OXYCODONE [Concomitant]
     Active Substance: OXYCODONE
     Route: 048
  4. ACETAMINOPHEN. [Concomitant]
     Active Substance: ACETAMINOPHEN
     Indication: PREMEDICATION
     Route: 048
     Dates: start: 20110209
  5. METFORMIN [Concomitant]
     Active Substance: METFORMIN HYDROCHLORIDE
  6. DIPHENHYDRAMINE HCL [Concomitant]
     Active Substance: DIPHENHYDRAMINE HYDROCHLORIDE
     Indication: PREMEDICATION
     Route: 048
     Dates: start: 20110209
  7. GLYBURIDE. [Concomitant]
     Active Substance: GLYBURIDE
  8. METHOTREXATE [Concomitant]
     Active Substance: METHOTREXATE
     Route: 048
  9. METHYLPREDNISOLONE. [Concomitant]
     Active Substance: METHYLPREDNISOLONE
     Indication: PREMEDICATION
     Route: 042
     Dates: start: 20110209
  10. RITUXAN [Suspect]
     Active Substance: RITUXIMAB
     Indication: RHEUMATOID ARTHRITIS
     Dosage: DATE OF LAST DOSE PRIOR TO SAE : 03/OCT/2012.
     Route: 042
     Dates: start: 20110209

REACTIONS (10)
  - Headache [Recovered/Resolved]
  - Fibromyalgia [Not Recovered/Not Resolved]
  - Nasopharyngitis [Recovered/Resolved]
  - VIIth nerve paralysis [Recovered/Resolved]
  - Nausea [Recovered/Resolved]
  - Dysarthria [Recovered/Resolved]
  - Infusion related reaction [Recovered/Resolved]
  - Facial paresis [Recovered/Resolved]
  - Grip strength decreased [Recovered/Resolved]
  - Syncope [Recovered/Resolved]

NARRATIVE: CASE EVENT DATE: 2012
